FAERS Safety Report 12294162 (Version 1)
Quarter: 2016Q2

REPORT INFORMATION
  Report Type: Spontaneous
  Country: SE (occurrence: SE)
  Receive Date: 20160422
  Receipt Date: 20160422
  Transmission Date: 20160815
  Serious: Yes (Hospitalization)
  Sender: FDA-Public Use
  Company Number: SE-TEVA-652437ACC

PATIENT
  Age: 52 Year
  Sex: Male

DRUGS (2)
  1. ENALAPRIL [Concomitant]
     Active Substance: ENALAPRIL
  2. PRAVASTATIN TEVA 40 MG TABLETT [Suspect]
     Active Substance: PRAVASTATIN\PRAVASTATIN SODIUM
     Indication: HYPERLIPIDAEMIA
     Dosage: 40 MILLIGRAM DAILY;
     Route: 048
     Dates: start: 20150930, end: 20160108

REACTIONS (4)
  - Sepsis [Unknown]
  - Pancreatitis acute [Not Recovered/Not Resolved]
  - Anaemia [Unknown]
  - Type 2 diabetes mellitus [Unknown]

NARRATIVE: CASE EVENT DATE: 20160108
